FAERS Safety Report 5285723-7 (Version None)
Quarter: 2007Q1

REPORT INFORMATION
  Report Type: 
  Country: None (occurrence: None)
  Receive Date: 20070126
  Receipt Date: 20061019
  Transmission Date: 20070707
  Serious: No
  Sender: FDA-Public Use
  Company Number: 2006CT000603

PATIENT
  Age: 74 Year
  Sex: Female
  Weight: 53.978 kg

DRUGS (8)
  1. VENTAVIS [Suspect]
     Indication: PULMONARY HYPERTENSION
     Dosage: 5 UG;4 - 5X/DAY;INH
     Route: 055
     Dates: start: 20060321
  2. SILDENAFIL CITRATE [Concomitant]
  3. TRACLEER [Concomitant]
  4. ACTONEL [Concomitant]
  5. PANTOPRAZOLE [Concomitant]
  6. CYTOXAN [Concomitant]
  7. AMBIEN [Concomitant]
  8. CALCIUM CARBONATE [Concomitant]

REACTIONS (3)
  - DIARRHOEA [None]
  - NAUSEA [None]
  - PRURITUS [None]
